FAERS Safety Report 5512519-0 (Version None)
Quarter: 2007Q4

REPORT INFORMATION
  Report Type: 
  Country: None (occurrence: None)
  Receive Date: 20071112
  Receipt Date: 20070713
  Transmission Date: 20080405
  Serious: No
  Sender: FDA-Public Use
  Company Number: A0654595A

PATIENT
  Age: 54 Year
  Sex: Male
  Weight: 115.5 kg

DRUGS (8)
  1. AVANDAMET [Suspect]
     Dosage: 1TAB TWICE PER DAY
     Route: 048
     Dates: start: 20060101, end: 20070606
  2. ALTACE [Concomitant]
  3. ALLEGRA [Concomitant]
  4. CELEXA [Concomitant]
  5. CRESTOR [Concomitant]
  6. LOPRESSOR [Concomitant]
  7. ATIVAN [Concomitant]
  8. ZETIA [Concomitant]

REACTIONS (6)
  - ANOREXIA [None]
  - DIARRHOEA [None]
  - HEADACHE [None]
  - OEDEMA [None]
  - STOMACH DISCOMFORT [None]
  - WEIGHT INCREASED [None]
